FAERS Safety Report 8217755 (Version 6)
Quarter: 2013Q2

REPORT INFORMATION
  Report Type: Spontaneous
  Country: US (occurrence: US)
  Receive Date: 20111101
  Receipt Date: 20130425
  Transmission Date: 20140414
  Serious: Yes (Hospitalization, Congenital Anomaly)
  Sender: FDA-Public Use
  Company Number: US-GLAXOSMITHKLINE-A0951261A

PATIENT
  Age: 0 Year
  Sex: Male
  Weight: 2.5 kg

DRUGS (3)
  1. PAXIL [Suspect]
     Indication: ANXIETY
     Dosage: 20MG PER DAY
     Route: 064
     Dates: start: 1995, end: 2000
  2. PRENATAL VITAMINS [Concomitant]
     Route: 064
  3. XANAX [Concomitant]

REACTIONS (10)
  - Anomalous pulmonary venous connection [Unknown]
  - Pulmonary hypertension [Unknown]
  - Tourette^s disorder [Unknown]
  - Drug withdrawal syndrome [Unknown]
  - Fine motor delay [Unknown]
  - Attention deficit/hyperactivity disorder [Unknown]
  - Speech disorder developmental [Unknown]
  - Anxiety [Unknown]
  - Learning disability [Unknown]
  - Foetal exposure during pregnancy [Unknown]
